FAERS Safety Report 8609751-6 (Version None)
Quarter: 2012Q3

REPORT INFORMATION
  Report Type: 
  Country: None (occurrence: None)
  Receive Date: 20120821
  Receipt Date: 20120816
  Transmission Date: 20120928
  Serious: Yes (Hospitalization)
  Sender: FDA-Public Use
  Company Number: US-GILEAD-2012-0059380

PATIENT
  Sex: Male

DRUGS (1)
  1. LETAIRIS [Suspect]
     Indication: PRODUCT USED FOR UNKNOWN INDICATION
     Dosage: 10 MG, UNK
     Route: 048
     Dates: start: 20120218

REACTIONS (7)
  - LIVER FUNCTION TEST ABNORMAL [None]
  - RENAL FAILURE CHRONIC [None]
  - LIVER TRANSPLANT [None]
  - HEPATIC FAILURE [None]
  - JAUNDICE [None]
  - NAUSEA [None]
  - RENAL DISORDER [None]
